FAERS Safety Report 4448735-9 (Version None)
Quarter: 2004Q3

REPORT INFORMATION
  Report Type: 
  Country: None (occurrence: None)
  Receive Date: 20040909
  Receipt Date: 20040831
  Transmission Date: 20050211
  Serious: Yes (Death, Hospitalization)
  Sender: FDA-Public Use
  Company Number: K200401325

PATIENT
  Sex: Female

DRUGS (5)
  1. ALTACE [Suspect]
     Indication: HYPERTENSION
     Dosage: 5 MG, QD, ORAL; SEE IMAGE
     Route: 048
     Dates: start: 19980305, end: 19980101
  2. ALTACE [Suspect]
     Indication: HYPERTENSION
     Dosage: 5 MG, QD, ORAL; SEE IMAGE
     Route: 048
     Dates: start: 19980101, end: 19990101
  3. ALTACE [Suspect]
     Indication: HYPERTENSION
     Dosage: 5 MG, QD, ORAL; SEE IMAGE
     Route: 048
     Dates: start: 19990101, end: 20020705
  4. FUROSEMIDE [Concomitant]
  5. LACIDIPINE [Concomitant]

REACTIONS (11)
  - ANHEDONIA [None]
  - ASTHENIA [None]
  - CARDIAC FAILURE [None]
  - FATIGUE [None]
  - FEELING ABNORMAL [None]
  - GENERAL PHYSICAL HEALTH DETERIORATION [None]
  - HAEMOGLOBIN DECREASED [None]
  - HYPERKALAEMIA [None]
  - MYOCARDIAL INFARCTION [None]
  - PROTEINURIA [None]
  - RENAL IMPAIRMENT [None]
